FAERS Safety Report 7776405-8 (Version None)
Quarter: 2011Q3

REPORT INFORMATION
  Report Type: 
  Country: None (occurrence: None)
  Receive Date: 20110926
  Receipt Date: 20110921
  Transmission Date: 20111222
  Serious: Yes (Death, Life-Threatening, Hospitalization)
  Sender: FDA-Public Use
  Company Number: JP-PFIZER INC-2006022618

PATIENT
  Age: 74 Year
  Sex: Male
  Weight: 38 kg

DRUGS (17)
  1. PRAVASTATIN SODIUM [Concomitant]
  2. VFEND [Suspect]
     Indication: BRONCHOPULMONARY ASPERGILLOSIS
     Route: 042
     Dates: start: 20060209, end: 20060212
  3. PRAVASTATIN SODIUM [Concomitant]
     Route: 048
     Dates: start: 20030101
  4. DILTIAZEM HCL [Concomitant]
     Route: 048
     Dates: start: 20020101
  5. QVAR 40 [Concomitant]
     Route: 055
     Dates: start: 20060101
  6. YODEL [Concomitant]
     Route: 048
     Dates: start: 20060126
  7. SEREVENT [Concomitant]
     Route: 055
     Dates: start: 20060101
  8. TRANEXAMIC ACID [Concomitant]
     Route: 048
     Dates: start: 20060210
  9. ISOSORBIDE MONONITRATE [Concomitant]
     Route: 048
     Dates: start: 20020101
  10. ASPIRIN [Concomitant]
     Route: 048
     Dates: start: 20020101
  11. UNASYN ORAL TABLET [Concomitant]
     Route: 048
     Dates: start: 20060131, end: 20060203
  12. ADONA [Concomitant]
     Route: 042
     Dates: start: 20060210
  13. MAXIPIME [Concomitant]
     Route: 042
     Dates: start: 20060203, end: 20060212
  14. UNASYN [Concomitant]
     Route: 042
     Dates: start: 20060124, end: 20060130
  15. SPIRIVA [Concomitant]
     Route: 055
  16. CODEINE SULFATE [Concomitant]
     Route: 048
  17. SIGMART [Concomitant]
     Route: 048
     Dates: start: 20020101

REACTIONS (1)
  - INTERSTITIAL LUNG DISEASE [None]
